FAERS Safety Report 20111062 (Version 1)
Quarter: 2021Q4

REPORT INFORMATION
  Report Type: Spontaneous
  Country: ES (occurrence: ES)
  Receive Date: 20211125
  Receipt Date: 20211125
  Transmission Date: 20220304
  Serious: Yes (Other)
  Sender: FDA-Public Use
  Company Number: ES-ACTAVIS-2009B-03912

PATIENT
  Age: 51 Year
  Sex: Male

DRUGS (2)
  1. IBUPROFEN [Suspect]
     Active Substance: IBUPROFEN
     Indication: Upper respiratory tract infection
     Dosage: UNK
     Route: 048
  2. IBUPROFEN [Suspect]
     Active Substance: IBUPROFEN
     Indication: Influenza

REACTIONS (7)
  - Erythema [Recovered/Resolved]
  - Blister [Recovered/Resolved]
  - Fixed eruption [Recovered/Resolved]
  - Purpura [Recovered/Resolved]
  - Skin plaque [Recovered/Resolved]
  - Epidermal necrosis [Recovered/Resolved]
  - Skin burning sensation [Recovered/Resolved]
